FAERS Safety Report 4816263-4 (Version None)
Quarter: 2005Q4

REPORT INFORMATION
  Report Type: 
  Country: None (occurrence: None)
  Receive Date: 20051026
  Receipt Date: 20051010
  Transmission Date: 20060501
  Serious: Yes (Life-Threatening)
  Sender: FDA-Public Use
  Company Number: DSA_27286_2005

PATIENT
  Age: 79 Year
  Sex: Male

DRUGS (3)
  1. TAVOR [Suspect]
     Dosage: 1 MG Q DAY PO
     Route: 048
     Dates: start: 20050901, end: 20050929
  2. SERMION [Suspect]
     Dosage: 5 MG Q DAY PO
     Route: 048
     Dates: start: 20050901, end: 20050929
  3. TICLID [Suspect]
     Dosage: 250 MG Q DAY PO
     Route: 048
     Dates: start: 20050901, end: 20050929

REACTIONS (7)
  - BLOOD CREATINE PHOSPHOKINASE INCREASED [None]
  - BLOOD LACTATE DEHYDROGENASE INCREASED [None]
  - DEHYDRATION [None]
  - DERMATITIS EXFOLIATIVE [None]
  - RENAL FAILURE [None]
  - RESPIRATORY FAILURE [None]
  - TRANSAMINASES INCREASED [None]
